FAERS Safety Report 18260116 (Version 3)
Quarter: 2020Q3

REPORT INFORMATION
  Report Type: Spontaneous
  Country: US (occurrence: US)
  Receive Date: 20200913
  Receipt Date: 20200922
  Transmission Date: 20201103
  Serious: No
  Sender: FDA-Public Use
  Company Number: US-GLAXOSMITHKLINE-US2020AMR179663

PATIENT
  Sex: Female

DRUGS (2)
  1. ZEJULA [Suspect]
     Active Substance: NIRAPARIB
     Indication: NEOPLASM MALIGNANT
     Dosage: 200 MG, QD
     Route: 065
     Dates: start: 20200825
  2. ZEJULA [Suspect]
     Active Substance: NIRAPARIB
     Indication: OVARIAN CANCER

REACTIONS (7)
  - Headache [Unknown]
  - Arthralgia [Unknown]
  - Middle insomnia [Not Recovered/Not Resolved]
  - Multiple allergies [Unknown]
  - Arthritis [Unknown]
  - Hypotension [Unknown]
  - Insomnia [Unknown]
